FAERS Safety Report 16294665 (Version 1)
Quarter: 2019Q2

REPORT INFORMATION
  Report Type: Spontaneous
  Country: US (occurrence: US)
  Receive Date: 20190509
  Receipt Date: 20190509
  Transmission Date: 20190711
  Serious: No
  Sender: FDA-Public Use
  Company Number: US-ROCHE-2194664

PATIENT
  Sex: Male

DRUGS (1)
  1. ESBRIET [Suspect]
     Active Substance: PIRFENIDONE
     Indication: PRODUCT USED FOR UNKNOWN INDICATION
     Route: 065

REACTIONS (14)
  - Chest discomfort [Unknown]
  - Dysphagia [Unknown]
  - Asthenia [Unknown]
  - Fatigue [Unknown]
  - Speech disorder [Unknown]
  - Dyspnoea [Unknown]
  - Wheezing [Unknown]
  - Dizziness [Unknown]
  - Headache [Unknown]
  - Arthralgia [Unknown]
  - Insomnia [Unknown]
  - Throat tightness [Unknown]
  - Taste disorder [Unknown]
  - Nasopharyngitis [Unknown]
